FAERS Safety Report 16224019 (Version 1)
Quarter: 2019Q2

REPORT INFORMATION
  Report Type: Report from Study
  Country: US (occurrence: US)
  Receive Date: 20190422
  Receipt Date: 20190422
  Transmission Date: 20190711
  Serious: Yes (Death, Hospitalization, Other)
  Sender: FDA-Public Use
  Company Number: US-BRISTOL-MYERS SQUIBB COMPANY-BMS-2018-092971

PATIENT
  Age: 24 Year
  Sex: Male

DRUGS (2)
  1. NIVOLUMAB [Suspect]
     Active Substance: NIVOLUMAB
     Indication: SARCOMA
     Dosage: UNK
     Route: 065
     Dates: start: 20180509, end: 20180615
  2. NKTR-214 [Suspect]
     Active Substance: BEMPEGALDESLEUKIN
     Indication: SARCOMA
     Dosage: UNK
     Route: 065
     Dates: start: 20180509, end: 20180615

REACTIONS (1)
  - Respiratory failure [Fatal]

NARRATIVE: CASE EVENT DATE: 20181002
